FAERS Safety Report 16252834 (Version 1)
Quarter: 2019Q2

REPORT INFORMATION
  Report Type: Report from Study
  Country: US (occurrence: US)
  Receive Date: 20190429
  Receipt Date: 20190429
  Transmission Date: 20190711
  Serious: Yes (Other)
  Sender: FDA-Public Use
  Company Number: US-ACTELION-A-US2016-144815

PATIENT
  Age: 67 Year
  Sex: Female
  Weight: 104.31 kg

DRUGS (12)
  1. UPTRAVI [Suspect]
     Active Substance: SELEXIPAG
     Dosage: 1000 MCG, BID
     Route: 048
  2. UPTRAVI [Suspect]
     Active Substance: SELEXIPAG
     Dosage: UNK
     Route: 048
     Dates: start: 20161101
  3. LETAIRIS [Concomitant]
     Active Substance: AMBRISENTAN
  4. UPTRAVI [Suspect]
     Active Substance: SELEXIPAG
     Dosage: 400 MCG, BID
     Route: 048
     Dates: start: 20161004
  5. UPTRAVI [Suspect]
     Active Substance: SELEXIPAG
     Dosage: 800 MCG, BID
     Route: 048
     Dates: start: 20161004
  6. UPTRAVI [Suspect]
     Active Substance: SELEXIPAG
     Dosage: 600 MCG, UNK
     Route: 048
     Dates: start: 20161004
  7. ADCIRCA [Concomitant]
     Active Substance: TADALAFIL
  8. PLAVIX [Concomitant]
     Active Substance: CLOPIDOGREL BISULFATE
  9. TYVASO [Suspect]
     Active Substance: TREPROSTINIL
     Indication: PULMONARY HYPERTENSION
     Dosage: 60 MCG, QID
     Route: 055
     Dates: start: 20150327
  10. UPTRAVI [Suspect]
     Active Substance: SELEXIPAG
     Indication: PULMONARY HYPERTENSION
     Dosage: 600 MCG, BID
     Route: 048
     Dates: start: 20161004
  11. UPTRAVI [Suspect]
     Active Substance: SELEXIPAG
     Dosage: 1200 MCG, BID
     Route: 048
  12. AMLODIPINE [Concomitant]
     Active Substance: AMLODIPINE BESYLATE

REACTIONS (22)
  - Nasopharyngitis [Unknown]
  - Neck pain [Not Recovered/Not Resolved]
  - Weight decreased [Unknown]
  - Scleroderma [Unknown]
  - Diarrhoea [Unknown]
  - Influenza like illness [Unknown]
  - Influenza [Unknown]
  - Product use issue [Unknown]
  - Oxygen therapy [Unknown]
  - Myalgia [Unknown]
  - Arthralgia [Unknown]
  - Malaise [Unknown]
  - Insomnia [Unknown]
  - Back pain [Not Recovered/Not Resolved]
  - Transient ischaemic attack [Unknown]
  - Pain [Unknown]
  - Headache [Not Recovered/Not Resolved]
  - Dysentery [Unknown]
  - Impaired gastric emptying [Unknown]
  - Chills [Unknown]
  - Renal disorder [Unknown]
  - Bone pain [Unknown]

NARRATIVE: CASE EVENT DATE: 20190220
